FAERS Safety Report 4864644-5 (Version None)
Quarter: 2005Q4

REPORT INFORMATION
  Report Type: 
  Country: None (occurrence: None)
  Receive Date: 20051201
  Receipt Date: 20050706
  Transmission Date: 20060501
  Serious: No
  Sender: FDA-Public Use
  Company Number: 2005PV000245

PATIENT
  Age: 62 Year
  Sex: Male
  Weight: 125.6464 kg

DRUGS (7)
  1. BYETTA [Suspect]
     Indication: DIABETES MELLITUS
     Dosage: 5 MCG; SC
     Route: 058
     Dates: start: 20050705
  2. OLMESARTAN MEDOXOMIL [Concomitant]
  3. ALLOPURINOL [Concomitant]
  4. TRICOR [Concomitant]
  5. OXYCONTIN [Concomitant]
  6. PERCOCET [Concomitant]
  7. VALIUM [Concomitant]

REACTIONS (1)
  - MEDICATION ERROR [None]
